FAERS Safety Report 6249378-7 (Version None)
Quarter: 2009Q2

REPORT INFORMATION
  Report Type: 
  Country: None (occurrence: None)
  Receive Date: 20090629
  Receipt Date: 20090618
  Transmission Date: 20091009
  Serious: Yes (Hospitalization, Other)
  Sender: FDA-Public Use
  Company Number: US-BIOGENIDEC-2009BI015182

PATIENT
  Age: 48 Year
  Sex: Female

DRUGS (5)
  1. AVONEX [Suspect]
     Indication: MULTIPLE SCLEROSIS
     Route: 030
     Dates: start: 19980301
  2. MORPHINE [Concomitant]
     Indication: BONE PAIN
  3. MORPHINE [Concomitant]
     Indication: SCIATICA
  4. MARCAINE [Concomitant]
     Indication: BONE PAIN
  5. MARCAINE [Concomitant]
     Indication: SCIATICA

REACTIONS (7)
  - DYSSTASIA [None]
  - LIP EXFOLIATION [None]
  - LUNG DISORDER [None]
  - PNEUMONIA [None]
  - PULMONARY THROMBOSIS [None]
  - RASH [None]
  - SKIN LESION [None]
